FAERS Safety Report 7765740-5 (Version None)
Quarter: 2011Q3

REPORT INFORMATION
  Report Type: 
  Country: None (occurrence: None)
  Receive Date: 20110921
  Receipt Date: 20110916
  Transmission Date: 20111222
  Serious: Yes (Death, Hospitalization)
  Sender: FDA-Public Use
  Company Number: US-AMGEN-USASP2011045717

PATIENT
  Age: 82 Year
  Sex: Male

DRUGS (1)
  1. NPLATE [Suspect]
     Indication: IDIOPATHIC THROMBOCYTOPENIC PURPURA
     Dosage: 78 MUG, UNK
     Route: 058
     Dates: start: 20080917, end: 20081001

REACTIONS (1)
  - ACUTE LEUKAEMIA [None]
